FAERS Safety Report 12959394 (Version 1)
Quarter: 2016Q4

REPORT INFORMATION
  Report Type: Spontaneous
  Country: IE (occurrence: IE)
  Receive Date: 20161121
  Receipt Date: 20161121
  Transmission Date: 20170207
  Serious: Yes (Other)
  Sender: FDA-Public Use
  Company Number: PHFR2016IE009216

PATIENT
  Sex: Female

DRUGS (1)
  1. TEGRETOL [Suspect]
     Active Substance: CARBAMAZEPINE
     Indication: NEURALGIA
     Dosage: 100 MG, BID (ONE IN MORNING, ONE AT NIGHT)
     Route: 048
     Dates: end: 20160924

REACTIONS (5)
  - Paraesthesia [Recovering/Resolving]
  - Dizziness [Recovering/Resolving]
  - Muscle fatigue [Not Recovered/Not Resolved]
  - Muscle spasms [Recovering/Resolving]
  - Muscular weakness [Not Recovered/Not Resolved]
